FAERS Safety Report 18465035 (Version 3)
Quarter: 2024Q2

REPORT INFORMATION
  Report Type: Spontaneous
  Country: US (occurrence: US)
  Receive Date: 20201104
  Receipt Date: 20240412
  Transmission Date: 20240716
  Serious: Yes (Other)
  Sender: FDA-Public Use
  Company Number: US-PFIZER INC-2020425922

PATIENT
  Age: 67 Year
  Sex: Female
  Weight: 87.982 kg

DRUGS (4)
  1. IBRANCE [Suspect]
     Active Substance: PALBOCICLIB
     Indication: Breast cancer female
     Dosage: 125 MG
     Dates: start: 20191227
  2. IBRANCE [Suspect]
     Active Substance: PALBOCICLIB
     Indication: Invasive lobular breast carcinoma
     Dosage: 125 MG, CYCLIC (125 MG, QD (ONCE DAILY) X 21 DAYS)
     Dates: start: 20191228
  3. LETROZOLE [Suspect]
     Active Substance: LETROZOLE
     Indication: Breast cancer female
     Dosage: 2.5 MG, DAILY
     Route: 048
  4. XGEVA [Suspect]
     Active Substance: DENOSUMAB
     Dosage: 120 MG, EVERY 28 DAYS
     Route: 058
     Dates: end: 202011

REACTIONS (3)
  - Osteonecrosis of jaw [Unknown]
  - Pain in extremity [Not Recovered/Not Resolved]
  - Lymphadenopathy [Unknown]

NARRATIVE: CASE EVENT DATE: 20201101
